FAERS Safety Report 15334556 (Version 1)
Quarter: 2018Q3

REPORT INFORMATION
  Report Type: Spontaneous
  Country: US (occurrence: US)
  Receive Date: 20180830
  Receipt Date: 20180830
  Transmission Date: 20181010
  Serious: Yes (Hospitalization)
  Sender: FDA-Public Use
  Company Number: US-JNJFOC-20180837832

PATIENT
  Age: 49 Year
  Sex: Female
  Weight: 114.2 kg

DRUGS (1)
  1. INVOKANA [Suspect]
     Active Substance: CANAGLIFLOZIN
     Indication: TYPE 2 DIABETES MELLITUS
     Route: 048
     Dates: start: 20151229

REACTIONS (4)
  - Gangrene [Unknown]
  - Osteomyelitis acute [Unknown]
  - Abscess limb [Unknown]
  - Toe amputation [Unknown]

NARRATIVE: CASE EVENT DATE: 201512
